FAERS Safety Report 5749708-6 (Version None)
Quarter: 2008Q2

REPORT INFORMATION
  Report Type: 
  Country: None (occurrence: None)
  Receive Date: 20080522
  Receipt Date: 20080522
  Transmission Date: 20081010
  Serious: Yes (Hospitalization)
  Sender: FDA-Public Use
  Company Number: None

PATIENT
  Age: 80 Year
  Sex: Female
  Weight: 72 kg

DRUGS (2)
  1. AMBIEN [Suspect]
     Indication: INSOMNIA
     Dosage: 5 MG QHS PO/PRIOR TO ADMISSION
     Route: 048
  2. ZONEGRAN [Suspect]
     Indication: PARTIAL SEIZURES
     Dosage: 50 MG QHS PO
     Route: 048

REACTIONS (6)
  - CONFUSIONAL STATE [None]
  - CONVULSION [None]
  - HALLUCINATION, VISUAL [None]
  - INCORRECT DOSE ADMINISTERED [None]
  - PAIN [None]
  - SOMNOLENCE [None]
